FAERS Safety Report 6713283-X (Version None)
Quarter: 2010Q2

REPORT INFORMATION
  Report Type: 
  Country: None (occurrence: None)
  Receive Date: 20100506
  Receipt Date: 20100503
  Transmission Date: 20101027
  Serious: Yes (Death, Hospitalization)
  Sender: FDA-Public Use
  Company Number: DE-WYE-G06077410

PATIENT
  Sex: Female
  Weight: 80 kg

DRUGS (12)
  1. TORISEL [Suspect]
     Indication: METASTATIC RENAL CELL CARCINOMA
     Route: 042
     Dates: start: 20090210, end: 20100406
  2. METOPROLOL [Concomitant]
     Dosage: 100 MG, FREQUENCY UNKNOWN
     Route: 048
  3. ALLOPURINOL [Concomitant]
     Dosage: 100 MG, FREQUENCY UNKNOWN
     Route: 048
  4. OLMESARTAN MEDOXOMIL [Concomitant]
     Dosage: 20 MG, FREQUENCY UNKNOWN
     Route: 048
  5. CLEMASTINE FUMARATE [Concomitant]
     Indication: PREMEDICATION
     Dosage: 2 MG PRIOR TO TORISEL ADMINISTRATION
     Route: 042
     Dates: start: 20090210
  6. THEOPHYLLINE [Concomitant]
     Dosage: 400 MG RETARD FORMULATION, FREQUENCY UNKNOWN
     Route: 048
  7. ACETYLSALICYLIC ACID [Concomitant]
     Dosage: 100 MG, FREQUENCY UNKNOWN
     Route: 048
  8. IBUPROFEN [Concomitant]
     Dosage: 600 MG, FREQUENCY UNKNOWN
     Route: 048
  9. VERTIGOHEEL [Concomitant]
  10. INSULIN ACTRAPHANE [Concomitant]
  11. MOXONIDINE [Concomitant]
  12. TORASEMIDE [Concomitant]
     Dosage: 10 MG, FREQUENCY UNKNOWN
     Route: 048

REACTIONS (5)
  - ATRIAL FIBRILLATION [None]
  - CARDIAC FAILURE [None]
  - CONDITION AGGRAVATED [None]
  - DIVERTICULUM INTESTINAL [None]
  - PERITONITIS [None]
